FAERS Safety Report 6236142-8 (Version None)
Quarter: 2009Q2

REPORT INFORMATION
  Report Type: 
  Country: None (occurrence: None)
  Receive Date: 20090619
  Receipt Date: 20090618
  Transmission Date: 20091009
  Serious: Yes (Hospitalization)
  Sender: FDA-Public Use
  Company Number: DEWYE752011MAY04

PATIENT
  Sex: Male
  Weight: 61 kg

DRUGS (14)
  1. RAPAMUNE [Suspect]
     Indication: PROPHYLAXIS AGAINST TRANSPLANT REJECTION
     Dosage: 6MG
     Route: 048
     Dates: start: 20020918
  2. RAPAMUNE [Suspect]
     Dosage: 3MG
     Route: 048
     Dates: start: 20031125
  3. ZOLOFT [Concomitant]
     Dosage: 75MG
     Dates: start: 20020918
  4. ZOLOFT [Concomitant]
     Dosage: 50MG
  5. NEORECORMON [Concomitant]
  6. ALLOPURINOL [Concomitant]
     Dosage: 150MG
  7. BELOC ZOK [Concomitant]
     Dosage: 95MG
     Dates: start: 20020918
  8. BELOC ZOK [Concomitant]
     Dosage: 190MG
  9. URBASON [Concomitant]
     Indication: PROPHYLAXIS AGAINST TRANSPLANT REJECTION
     Dosage: 8MG
     Dates: start: 20020918
  10. URBASON [Concomitant]
     Dosage: 4MG
     Dates: start: 20021119
  11. PHYSIOTENS [Concomitant]
     Dosage: 0.6MG
  12. DELIX [Concomitant]
     Dosage: 5MG
     Dates: start: 20020918
  13. NEPRESOL [Concomitant]
     Dosage: 100MG
  14. TORSEMIDE [Concomitant]
     Dosage: 10MG

REACTIONS (1)
  - RENAL FAILURE ACUTE [None]
